FAERS Safety Report 12628791 (Version 1)
Quarter: 2016Q3

REPORT INFORMATION
  Report Type: Spontaneous
  Country: US (occurrence: US)
  Receive Date: 20160808
  Receipt Date: 20160808
  Transmission Date: 20161109
  Serious: No
  Sender: FDA-Public Use
  Company Number: US-AUROBINDO-AUR-APU-2016-07570

PATIENT
  Sex: Male

DRUGS (1)
  1. LEVOFLOXACIN TABLETS 500MG [Suspect]
     Active Substance: LEVOFLOXACIN
     Indication: INFLAMMATION
     Dosage: 1 DF, DAILY
     Route: 065
     Dates: start: 20160505, end: 20160519

REACTIONS (2)
  - Diarrhoea [Recovered/Resolved]
  - Product substitution issue [Unknown]
